FAERS Safety Report 6703698-8 (Version None)
Quarter: 2010Q2

REPORT INFORMATION
  Report Type: 
  Country: None (occurrence: None)
  Receive Date: 20100430
  Receipt Date: 20100112
  Transmission Date: 20101027
  Serious: No
  Sender: FDA-Public Use
  Company Number: A0838996A

PATIENT
  Age: 10 Year
  Sex: Female

DRUGS (1)
  1. FLOVENT [Suspect]
     Indication: DRUG USE FOR UNKNOWN INDICATION
     Route: 065

REACTIONS (1)
  - HEADACHE [None]
